FAERS Safety Report 20803908 (Version 1)
Quarter: 2022Q2

REPORT INFORMATION
  Report Type: Report from Study
  Country: US (occurrence: US)
  Receive Date: 20220509
  Receipt Date: 20220509
  Transmission Date: 20220720
  Serious: Yes (Other)
  Sender: FDA-Public Use
  Company Number: US-TAKEDA-2022TUS015943

PATIENT
  Sex: Male

DRUGS (1)
  1. BRIGATINIB [Suspect]
     Active Substance: BRIGATINIB
     Indication: Lung neoplasm malignant
     Dosage: 30 MILLIGRAM, QD
     Route: 048
     Dates: start: 201911, end: 202102

REACTIONS (4)
  - Lyme disease [Unknown]
  - Muscular weakness [Unknown]
  - Fatigue [Unknown]
  - Asthenia [Unknown]
